FAERS Safety Report 7071308-9 (Version None)
Quarter: 2010Q4

REPORT INFORMATION
  Report Type: 
  Country: None (occurrence: None)
  Receive Date: 20101028
  Receipt Date: 20101028
  Transmission Date: 20110411
  Serious: No
  Sender: FDA-Public Use
  Company Number: None

PATIENT

DRUGS (2)
  1. FERROUS SULFATE DROPS 75MG/0.6ML QUALITEST [Suspect]
  2. FERROUS SULFATE DROPS 75MG/1ML QUALITEST [Suspect]

REACTIONS (2)
  - MEDICATION ERROR [None]
  - PRODUCT LABEL ISSUE [None]
